FAERS Safety Report 8079551-7 (Version None)
Quarter: 2012Q1

REPORT INFORMATION
  Report Type: 
  Country: None (occurrence: None)
  Receive Date: 20120128
  Receipt Date: 20110829
  Transmission Date: 20120608
  Serious: No
  Sender: FDA-Public Use
  Company Number: US-ABBOTT-11P-163-0850211-00

PATIENT
  Sex: Male

DRUGS (6)
  1. METFFORMIN HYDROCHLORIDE [Concomitant]
     Indication: DIABETES MELLITUS
     Route: 048
  2. TRICOR [Concomitant]
     Indication: BLOOD TRIGLYCERIDES INCREASED
     Route: 048
  3. HUMIRA [Suspect]
     Indication: PSORIASIS
     Dates: end: 20110601
  4. GLIMEPIRIDE [Concomitant]
     Indication: DIABETES MELLITUS
  5. SIMVASTATIN [Concomitant]
     Indication: BLOOD CHOLESTEROL INCREASED
     Route: 048
  6. DIOVAN [Concomitant]
     Indication: BLOOD PRESSURE INCREASED
     Dosage: 320MG/12.5MG
     Route: 048

REACTIONS (2)
  - PSORIASIS [None]
  - BLOOD GLUCOSE INCREASED [None]
